FAERS Safety Report 6227399-8 (Version None)
Quarter: 2009Q2

REPORT INFORMATION
  Report Type: 
  Country: None (occurrence: None)
  Receive Date: 20090610
  Receipt Date: 20090610
  Transmission Date: 20091009
  Serious: Yes (Other)
  Sender: FDA-Public Use
  Company Number: None

PATIENT
  Age: 67 Year
  Sex: Male
  Weight: 90.7194 kg

DRUGS (1)
  1. VENTOLIN HFA [Suspect]
     Indication: ASTHMA
     Dosage: 1 - 2 PUFFS AS NEEDED PO
     Route: 048
     Dates: start: 20090601, end: 20090602

REACTIONS (8)
  - DRY MOUTH [None]
  - DYSPHAGIA [None]
  - DYSPHONIA [None]
  - ERYTHEMA [None]
  - INCREASED UPPER AIRWAY SECRETION [None]
  - LYMPHADENOPATHY [None]
  - SWELLING [None]
  - THROAT IRRITATION [None]
